FAERS Safety Report 19723106 (Version 1)
Quarter: 2021Q3

REPORT INFORMATION
  Report Type: Spontaneous
  Country: DE (occurrence: DE)
  Receive Date: 20210819
  Receipt Date: 20210819
  Transmission Date: 20211014
  Serious: Yes (Hospitalization)
  Sender: FDA-Public Use
  Company Number: DE-TEVA-2021-DE-1941931

PATIENT
  Age: 56 Year
  Sex: Female
  Weight: 56 kg

DRUGS (8)
  1. NATRIUMCARBONAT [Concomitant]
     Dosage: 3 GRAM DAILY; 1?1?1?0
  2. SIMVASTATIN. [Concomitant]
     Active Substance: SIMVASTATIN
     Dosage: 20 MILLIGRAM DAILY; 0?0?1?0
  3. MYCOPHENOLSAURE [Suspect]
     Active Substance: MYCOPHENOLIC ACID
     Dosage: 1000 MILLIGRAM DAILY; 500 MG, 1?0?1?0
  4. ACETYLSALICYLSAURE [Concomitant]
     Active Substance: ASPIRIN
     Dosage: 200 MILLIGRAM DAILY;  0?1?1?0
  5. ISOPHANE INSULIN [Concomitant]
     Active Substance: INSULIN NOS
     Dosage: 4 IU (INTERNATIONAL UNIT) DAILY; 1?0?0?0
  6. CALCITRIOL. [Concomitant]
     Active Substance: CALCITRIOL
     Dosage: .25 MICROGRAM DAILY; 1?0?0?0
  7. TACROLIMUS. [Suspect]
     Active Substance: TACROLIMUS
     Dosage: 3.5 MILLIGRAM DAILY; 1?0?0?0
  8. INSULIN ASPART [Concomitant]
     Active Substance: INSULIN ASPART
     Dosage: SCHEME

REACTIONS (4)
  - Tachypnoea [Unknown]
  - Pollakiuria [Unknown]
  - Pyrexia [Unknown]
  - General physical health deterioration [Unknown]
